FAERS Safety Report 17400737 (Version 7)
Quarter: 2021Q4

REPORT INFORMATION
  Report Type: Report from Study
  Country: US (occurrence: US)
  Receive Date: 20200211
  Receipt Date: 20211006
  Transmission Date: 20220303
  Serious: No
  Sender: FDA-Public Use
  Company Number: NVSC2020US035931

PATIENT
  Age: 77 Year
  Sex: Female
  Weight: 116 kg

DRUGS (13)
  1. TREPROSTINIL [Suspect]
     Active Substance: TREPROSTINIL
     Indication: Pulmonary arterial hypertension
     Dosage: 20 NG PER KG PER MINUTE, CONTINOUS
     Route: 042
     Dates: start: 20191122
  2. TREPROSTINIL [Suspect]
     Active Substance: TREPROSTINIL
     Indication: Pulmonary arterial hypertension
     Dosage: 20 NG PER KG PER MINUTE, CONTINOUS
     Route: 042
     Dates: start: 20191122
  3. TREPROSTINIL [Suspect]
     Active Substance: TREPROSTINIL
     Dosage: (20 NG/KG/MIN)
     Route: 042
     Dates: start: 20191122
  4. TREPROSTINIL [Suspect]
     Active Substance: TREPROSTINIL
     Dosage: 20 NG/KG/MIN, CONTINEUES
     Route: 065
  5. TREPROSTINIL [Suspect]
     Active Substance: TREPROSTINIL
     Dosage: 20 NG/KG/MIN, CONTINEUES
     Route: 042
  6. TREPROSTINIL [Suspect]
     Active Substance: TREPROSTINIL
     Dosage: UNK
     Route: 065
  7. TREPROSTINIL [Suspect]
     Active Substance: TREPROSTINIL
     Dosage: 29 NG/KG/MIN,CONTINUES(STENGTH:1MG/ML)
     Route: 042
     Dates: start: 20210208
  8. ADEMPAS [Suspect]
     Active Substance: RIOCIGUAT
     Indication: Product used for unknown indication
     Dosage: UNK
     Route: 065
  9. REMODULIN [Suspect]
     Active Substance: TREPROSTINIL
     Indication: Product used for unknown indication
     Dosage: UNK
     Route: 065
  10. XARELTO [Concomitant]
     Active Substance: RIVAROXABAN
     Indication: Product used for unknown indication
     Route: 065
  11. AMLODIPINE [Concomitant]
     Active Substance: AMLODIPINE BESYLATE
     Indication: Product used for unknown indication
     Route: 065
  12. OPSUMIT [Concomitant]
     Active Substance: MACITENTAN
     Indication: Product used for unknown indication
     Route: 065
  13. SILDENAFIL CITRATE [Concomitant]
     Active Substance: SILDENAFIL CITRATE
     Indication: Product used for unknown indication
     Dosage: UNK
     Route: 065

REACTIONS (8)
  - Lacrimation increased [Unknown]
  - Peripheral swelling [Unknown]
  - Joint swelling [Unknown]
  - Weight decreased [Unknown]
  - Catheter site related reaction [Unknown]
  - Headache [Unknown]
  - Pruritus [Unknown]
  - Abdominal discomfort [Unknown]

NARRATIVE: CASE EVENT DATE: 20190901
